FAERS Safety Report 6618581-6 (Version None)
Quarter: 2010Q1

REPORT INFORMATION
  Report Type: 
  Country: None (occurrence: None)
  Receive Date: 20100308
  Receipt Date: 20100224
  Transmission Date: 20100710
  Serious: Yes (Other)
  Sender: FDA-Public Use
  Company Number: GB-PFIZER INC-2010014928

PATIENT
  Age: 11 Year
  Sex: Male

DRUGS (2)
  1. PHENYTOIN SODIUM CAP [Suspect]
     Indication: LENNOX-GASTAUT SYNDROME
     Dosage: 150 MG, MORNING AND NIGHT
     Dates: start: 20100104
  2. PHENYTOIN SODIUM CAP [Suspect]
     Dosage: 50 MG, UNK
     Route: 048
     Dates: start: 20020101

REACTIONS (3)
  - CONVULSION [None]
  - DRUG LEVEL DECREASED [None]
  - EPILEPSY [None]
